FAERS Safety Report 19198185 (Version 1)
Quarter: 2021Q2

REPORT INFORMATION
  Report Type: Spontaneous
  Country: ES (occurrence: ES)
  Receive Date: 20210430
  Receipt Date: 20210430
  Transmission Date: 20210717
  Serious: Yes (Hospitalization)
  Sender: FDA-Public Use
  Company Number: ES-TEVA-2021-ES-1905872

PATIENT
  Age: 85 Year
  Sex: Female

DRUGS (1)
  1. ENALAPRIL/HIDROCLOROTIAZIDA 20/12,5 MG COMPRIMIDOS EFG, 28 COMPRIMIDOS [Suspect]
     Active Substance: ENALAPRIL\HYDROCHLOROTHIAZIDE
     Indication: HYPERTENSION
     Route: 048
     Dates: start: 20201009, end: 20210409

REACTIONS (1)
  - Acute kidney injury [Recovering/Resolving]

NARRATIVE: CASE EVENT DATE: 20210409
